FAERS Safety Report 7453343-1 (Version None)
Quarter: 2011Q2

REPORT INFORMATION
  Report Type: 
  Country: None (occurrence: None)
  Receive Date: 20110502
  Receipt Date: 20110419
  Transmission Date: 20111010
  Serious: Yes (Other)
  Sender: FDA-Public Use
  Company Number: PHHY2011US06531

PATIENT
  Sex: Male

DRUGS (1)
  1. EXJADE [Suspect]
     Indication: HAEMOLYTIC ANAEMIA
     Dosage: 1250 MG, QD
     Route: 048
     Dates: start: 20101006, end: 20110119

REACTIONS (3)
  - DEAFNESS NEUROSENSORY [None]
  - VIIITH NERVE LESION [None]
  - SINUSITIS [None]
